FAERS Safety Report 6680161-4 (Version None)
Quarter: 2010Q2

REPORT INFORMATION
  Report Type: 
  Country: None (occurrence: None)
  Receive Date: 20100413
  Receipt Date: 20100408
  Transmission Date: 20101027
  Serious: Yes (Death)
  Sender: FDA-Public Use
  Company Number: US-GILEAD-2010-0028406

PATIENT
  Sex: Female

DRUGS (20)
  1. LETAIRIS [Suspect]
     Indication: PULMONARY ARTERIAL HYPERTENSION
     Route: 048
     Dates: start: 20091203, end: 20100226
  2. REVATIO [Concomitant]
  3. FUROSEMIDE [Concomitant]
  4. AMLODIPINE BESYLATE [Concomitant]
  5. METOCLOPRAMIDE HCL [Concomitant]
  6. IPRATROPIUM BROMIDE [Concomitant]
  7. ALPRAZOLAM [Concomitant]
  8. LORAZEPAM [Concomitant]
  9. SYMBICORT [Concomitant]
  10. PREDNISOLONE [Concomitant]
  11. VENLAFAXINE HCL [Concomitant]
  12. HEPARIN LOCK-FLUSH [Concomitant]
  13. METHADONE HCL [Concomitant]
  14. HYDROCODONE BITARTRATE [Concomitant]
  15. ACETAZOLAMIDE [Concomitant]
  16. ALBUTEROL [Concomitant]
  17. OMEPRAZOLE [Concomitant]
  18. DOCUSATE SODIUM [Concomitant]
  19. SANTYL [Concomitant]
  20. MULTI-VITAMINS [Concomitant]

REACTIONS (1)
  - DEATH [None]
